FAERS Safety Report 7386954-2 (Version None)
Quarter: 2011Q1

REPORT INFORMATION
  Report Type: 
  Country: None (occurrence: None)
  Receive Date: 20110331
  Receipt Date: 20110321
  Transmission Date: 20110831
  Serious: Yes (Hospitalization)
  Sender: FDA-Public Use
  Company Number: GB-PFIZER INC-2011062618

PATIENT
  Age: 66 Year
  Sex: Female

DRUGS (1)
  1. CELECOXIB [Suspect]

REACTIONS (1)
  - CARPAL TUNNEL SYNDROME [None]
